FAERS Safety Report 19174776 (Version 1)
Quarter: 2021Q2

REPORT INFORMATION
  Report Type: Spontaneous
  Country: GB (occurrence: GB)
  Receive Date: 20210423
  Receipt Date: 20210423
  Transmission Date: 20210717
  Serious: Yes (Life-Threatening, Hospitalization)
  Sender: FDA-Public Use
  Company Number: GB-ASTRAZENECA-2021A346586

PATIENT
  Age: 57 Year
  Sex: Female

DRUGS (5)
  1. FASLODEX [Suspect]
     Active Substance: FULVESTRANT
     Indication: BREAST CANCER METASTATIC
     Dosage: C1DI,CID14 THEN EVERY 4 WEEKS
     Route: 030
     Dates: start: 20210323, end: 20210406
  2. PARACETAMOL [Concomitant]
     Active Substance: ACETAMINOPHEN
     Indication: BACK PAIN
     Dosage: 1 GRAM UN 6 HOUR
     Dates: start: 1997
  3. SEVELAMER [Concomitant]
     Active Substance: SEVELAMER
     Indication: HYPERPHOSPHATAEMIA
     Route: 048
     Dates: start: 20210331
  4. SEVELAMER [Concomitant]
     Active Substance: SEVELAMER
     Indication: HYPERPHOSPHATAEMIA
     Route: 048
     Dates: start: 20210326, end: 20210330
  5. PARACETAMOL [Concomitant]
     Active Substance: ACETAMINOPHEN
     Indication: ARTHRALGIA
     Dosage: 1 GRAM UN 6 HOUR
     Dates: start: 1997

REACTIONS (1)
  - Volvulus [Recovering/Resolving]

NARRATIVE: CASE EVENT DATE: 20210407
